FAERS Safety Report 7001359-1 (Version None)
Quarter: 2010Q3

REPORT INFORMATION
  Report Type: 
  Country: None (occurrence: None)
  Receive Date: 20100920
  Receipt Date: 20100423
  Transmission Date: 20110219
  Serious: No
  Sender: FDA-Public Use
  Company Number: US-ASTRAZENECA-2010SE18517

PATIENT
  Age: 18520 Day
  Sex: Male
  Weight: 99.8 kg

DRUGS (2)
  1. SEROQUEL [Suspect]
     Indication: FEAR
     Route: 048
     Dates: start: 20080101
  2. SEROQUEL [Suspect]
     Route: 048
     Dates: start: 20091201

REACTIONS (3)
  - FEAR [None]
  - PARANOIA [None]
  - THERAPY REGIMEN CHANGED [None]
